FAERS Safety Report 11435319 (Version 1)
Quarter: 2015Q3

REPORT INFORMATION
  Report Type: Spontaneous
  Country: US (occurrence: US)
  Receive Date: 20150831
  Receipt Date: 20150831
  Transmission Date: 20151125
  Serious: No
  Sender: FDA-Public Use
  Company Number: US-ENDO PHARMACEUTICALS INC.-2015-000730

PATIENT
  Sex: Female

DRUGS (1)
  1. SPIRONOLACTONE TABLETS [Suspect]
     Active Substance: SPIRONOLACTONE
     Indication: PRODUCT USED FOR UNKNOWN INDICATION
     Route: 065

REACTIONS (1)
  - Tendonitis [Unknown]
